FAERS Safety Report 4266743-8 (Version None)
Quarter: 2004Q1

REPORT INFORMATION
  Report Type: 
  Country: None (occurrence: None)
  Receive Date: 20040108
  Receipt Date: 20031231
  Transmission Date: 20041129
  Serious: Yes (Other)
  Sender: FDA-Public Use
  Company Number: GB-GLAXOSMITHKLINE-B0318868A

PATIENT
  Age: 64 Year
  Sex: Male

DRUGS (6)
  1. DIGOXIN [Suspect]
     Dosage: 250MCG PER DAY
     Route: 065
  2. ENALAPRIL [Suspect]
     Dosage: 40MG PER DAY
     Route: 065
  3. SPIRONOLACTONE [Suspect]
     Dosage: 25MG PER DAY
     Route: 065
  4. FRUSEMIDE [Suspect]
     Dosage: 40MG PER DAY
     Route: 065
  5. DOXAZOSIN MESYLATE [Concomitant]
     Dosage: 4MG PER DAY
     Route: 065
  6. WARFARIN SODIUM [Concomitant]
     Route: 065

REACTIONS (17)
  - ALPHA HAEMOLYTIC STREPTOCOCCAL INFECTION [None]
  - ANOREXIA [None]
  - AORTIC VALVE DISEASE MIXED [None]
  - ATRIAL FIBRILLATION [None]
  - BLOOD CREATININE INCREASED [None]
  - BLOOD CULTURE POSITIVE [None]
  - BLOOD UREA INCREASED [None]
  - CARDIAC VALVE VEGETATION [None]
  - CARDIOACTIVE DRUG LEVEL INCREASED [None]
  - DEHYDRATION [None]
  - DIZZINESS [None]
  - DRUG LEVEL ABOVE THERAPEUTIC [None]
  - ENDOCARDITIS [None]
  - MALAISE [None]
  - PYREXIA [None]
  - THERAPEUTIC AGENT TOXICITY [None]
  - VISION BLURRED [None]
